FAERS Safety Report 14802715 (Version 5)
Quarter: 2019Q4

REPORT INFORMATION
  Report Type: Spontaneous
  Country: US (occurrence: US)
  Receive Date: 20180424
  Receipt Date: 20191030
  Transmission Date: 20200122
  Serious: Yes (Other)
  Sender: FDA-Public Use
  Company Number: US-PFIZER INC-2018161154

PATIENT
  Age: 44 Year
  Sex: Male
  Weight: 123.8 kg

DRUGS (5)
  1. REVATIO [Suspect]
     Active Substance: SILDENAFIL CITRATE
     Indication: PULMONARY HYPERTENSION
     Dosage: 40 MG, 3X/DAY (TAKE TWO TABLETS BY MONTH 3 TIMES DAILY)
     Route: 048
     Dates: start: 20191025
  2. REVATIO [Suspect]
     Active Substance: SILDENAFIL CITRATE
     Indication: VENTRICULAR ASSIST DEVICE INSERTION
  3. REVATIO [Suspect]
     Active Substance: SILDENAFIL CITRATE
     Indication: CARDIAC FAILURE CONGESTIVE
     Dosage: 40 MG, 3 TIMES A DAY (2 TABLETS 3 TIMES A DAY)
     Route: 048
     Dates: start: 2014
  4. COUMADIN [Concomitant]
     Active Substance: WARFARIN SODIUM
  5. COLCRYS [Suspect]
     Active Substance: COLCHICINE
     Indication: GOUT
     Dosage: 0.6 MG, AS NEEDED
     Route: 048
     Dates: start: 2015

REACTIONS (6)
  - Loss of personal independence in daily activities [Unknown]
  - Product use issue [Unknown]
  - Heart rate decreased [Unknown]
  - Off label use [Unknown]
  - Gait disturbance [Unknown]
  - Gout [Unknown]

NARRATIVE: CASE EVENT DATE: 2014
